FAERS Safety Report 10058716 (Version 1)
Quarter: 2014Q2

REPORT INFORMATION
  Report Type: Spontaneous
  Country: US (occurrence: US)
  Receive Date: 20140404
  Receipt Date: 20140404
  Transmission Date: 20141212
  Serious: No
  Sender: FDA-Public Use
  Company Number: US-GLAXOSMITHKLINE-A0997434A

PATIENT
  Age: 50 Year
  Sex: Female

DRUGS (2)
  1. ALLI [Suspect]
     Indication: WEIGHT DECREASED
     Dates: start: 20121007, end: 20121013
  2. ARMOUR THYROID [Suspect]

REACTIONS (3)
  - Acne cystic [Not Recovered/Not Resolved]
  - Drug interaction [Not Recovered/Not Resolved]
  - Drug administration error [Unknown]
